FAERS Safety Report 11870354 (Version 2)
Quarter: 2016Q1

REPORT INFORMATION
  Report Type: Spontaneous
  Country: US (occurrence: US)
  Receive Date: 20151228
  Receipt Date: 20160130
  Transmission Date: 20160526
  Serious: No
  Sender: FDA-Public Use
  Company Number: PHEH2015US026470

PATIENT
  Weight: 73.9 kg

DRUGS (1)
  1. AFINITOR [Suspect]
     Active Substance: EVEROLIMUS
     Indication: BREAST CANCER
     Dosage: 10 MG, QD
     Route: 048
     Dates: start: 20151201

REACTIONS (6)
  - Abasia [Unknown]
  - Nausea [Unknown]
  - Vomiting [Unknown]
  - Acne [Not Recovered/Not Resolved]
  - Blood glucose increased [Unknown]
  - Dyspnoea [Unknown]
